FAERS Safety Report 5113920-X (Version None)
Quarter: 2006Q3

REPORT INFORMATION
  Report Type: 
  Country: None (occurrence: None)
  Receive Date: 20060921
  Receipt Date: 20060914
  Transmission Date: 20061208
  Serious: Yes (Hospitalization, Disabling)
  Sender: FDA-Public Use
  Company Number: AUWYE926715SEP06

PATIENT
  Age: 70 Year
  Sex: Female

DRUGS (4)
  1. PREMARIN [Suspect]
     Indication: HORMONE REPLACEMENT THERAPY
     Dosage: 0.625 MG 1X PER 1 DAY
     Route: 047
     Dates: end: 20060701
  2. OMEPRAZOLE MAGNESIUM [Concomitant]
  3. PRAVACHOL [Concomitant]
  4. AVAPRO [Concomitant]

REACTIONS (6)
  - BLINDNESS UNILATERAL [None]
  - DRUG WITHDRAWAL SYNDROME [None]
  - EYE PAIN [None]
  - HEADACHE [None]
  - SWELLING FACE [None]
  - URTICARIA GENERALISED [None]
